FAERS Safety Report 8977022 (Version 1)
Quarter: 2012Q4

REPORT INFORMATION
  Report Type: 
  Country: US (occurrence: US)
  Receive Date: 20121220
  Receipt Date: 20121220
  Transmission Date: 20130627
  Serious: No
  Sender: FDA-Public Use
  Company Number: US-BAYER-2012-130911

PATIENT
  Sex: Female
  Weight: 69.39 kg

DRUGS (3)
  1. BETASERON [Suspect]
     Dosage: 0.25 mg (0.3 mg), QOD
     Route: 058
  2. FLUOXETINE [Concomitant]
     Dosage: 10 mg, UNK
  3. DRUG NAME NOT REPORTED [Concomitant]
     Indication: PREMEDICATION

REACTIONS (3)
  - Fatigue [Unknown]
  - Tremor [Unknown]
  - Headache [Unknown]
